FAERS Safety Report 10744048 (Version 1)
Quarter: 2015Q1

REPORT INFORMATION
  Report Type: Spontaneous
  Country: US (occurrence: None)
  Receive Date: 20150123
  Receipt Date: 20150123
  Transmission Date: 20150721
  Serious: No
  Sender: FDA-Public Use
  Company Number: None

PATIENT
  Age: 56 Year
  Sex: Female
  Weight: 67.13 kg

DRUGS (1)
  1. ESTRADIOL 0.05 MYLAN [Suspect]
     Active Substance: ESTRADIOL
     Indication: RADICAL HYSTERECTOMY
     Dosage: 1 PATCH
     Dates: start: 20150108, end: 20150119

REACTIONS (5)
  - Dyspnoea [None]
  - Pain in extremity [None]
  - Product substitution issue [None]
  - Headache [None]
  - Drug ineffective [None]

NARRATIVE: CASE EVENT DATE: 20150118
